FAERS Safety Report 15569100 (Version 1)
Quarter: 2018Q4

REPORT INFORMATION
  Report Type: Spontaneous
  Country: US (occurrence: US)
  Receive Date: 20181031
  Receipt Date: 20181031
  Transmission Date: 20190205
  Serious: No
  Sender: FDA-Public Use
  Company Number: US-ASTRAZENECA-2018SF28780

PATIENT
  Sex: Female
  Weight: 79.4 kg

DRUGS (5)
  1. NEXIUM [Suspect]
     Active Substance: ESOMEPRAZOLE MAGNESIUM
     Indication: GASTROOESOPHAGEAL REFLUX DISEASE
     Dosage: GENERIC NEXIUM
     Route: 048
  2. NEXIUM [Suspect]
     Active Substance: ESOMEPRAZOLE MAGNESIUM
     Indication: GASTROOESOPHAGEAL REFLUX DISEASE
     Route: 048
  3. ATORVASTATIN [Concomitant]
     Active Substance: ATORVASTATIN
     Indication: BLOOD CHOLESTEROL
     Route: 048
  4. LUVOX [Concomitant]
     Active Substance: FLUVOXAMINE MALEATE
     Indication: TREMOR
     Route: 048
  5. AZO OTC [Concomitant]
     Indication: PAIN
     Dosage: UNKNOWN
     Route: 065

REACTIONS (8)
  - Barrett^s oesophagus [Recovered/Resolved]
  - Tremor [Unknown]
  - Laryngeal tremor [Unknown]
  - Off label use [Recovered/Resolved]
  - Gastric polyps [Recovered/Resolved]
  - Intentional product misuse [Unknown]
  - Dystonia [Not Recovered/Not Resolved]
  - Dysphonia [Unknown]
